FAERS Safety Report 20583029 (Version 1)
Quarter: 2022Q1

REPORT INFORMATION
  Report Type: Spontaneous
  Country: None (occurrence: FR)
  Receive Date: 20220311
  Receipt Date: 20220311
  Transmission Date: 20220423
  Serious: Yes (Hospitalization)
  Sender: FDA-Public Use
  Company Number: FR-AFSSAPSAVPA20220028

PATIENT
  Age: 19 Year
  Sex: Male
  Weight: 80 kg

DRUGS (1)
  1. NITROUS OXIDE [Suspect]
     Active Substance: NITROUS OXIDE
     Indication: Product used for unknown indication
     Route: 055

REACTIONS (3)
  - Abdominal pain [Unknown]
  - Vomiting [Unknown]
  - Paraesthesia [Unknown]

NARRATIVE: CASE EVENT DATE: 20211105
